FAERS Safety Report 12856959 (Version 1)
Quarter: 2016Q4

REPORT INFORMATION
  Report Type: Spontaneous
  Country: US (occurrence: US)
  Receive Date: 20161018
  Receipt Date: 20161018
  Transmission Date: 20170207
  Serious: Yes (Life-Threatening)
  Sender: FDA-Public Use
  Company Number: US-FRESENIUS KABI-FK201607801

PATIENT
  Age: 55 Year
  Sex: Female

DRUGS (3)
  1. VANCOMYCIN (MANUFACTURER UNKNOWN) [Suspect]
     Active Substance: VANCOMYCIN
     Indication: DEVICE RELATED INFECTION
  2. VANCOMYCIN (MANUFACTURER UNKNOWN) [Suspect]
     Active Substance: VANCOMYCIN
     Indication: STAPHYLOCOCCAL INFECTION
  3. VANCOMYCIN (MANUFACTURER UNKNOWN) [Suspect]
     Active Substance: VANCOMYCIN
     Indication: ANTIBIOTIC PROPHYLAXIS
     Route: 065

REACTIONS (2)
  - Disseminated intravascular coagulation [Recovered/Resolved]
  - Anaphylactic reaction [Recovered/Resolved]
